FAERS Safety Report 21379003 (Version 1)
Quarter: 2022Q3

REPORT INFORMATION
  Report Type: Spontaneous
  Country: US (occurrence: US)
  Receive Date: 20220927
  Receipt Date: 20220927
  Transmission Date: 20221026
  Serious: Yes (Hospitalization)
  Sender: FDA-Public Use
  Company Number: US-BRISTOL-MYERS SQUIBB COMPANY-2022-111658

PATIENT
  Age: 79 Year
  Sex: Female
  Weight: 85.2 kg

DRUGS (1)
  1. REVLIMID [Suspect]
     Active Substance: LENALIDOMIDE
     Indication: Follicular lymphoma
     Dosage: 3W, 1W OFF
     Route: 048
     Dates: start: 20220801

REACTIONS (2)
  - Adverse event [Unknown]
  - Prescribed overdose [Unknown]
